FAERS Safety Report 20425635 (Version 1)
Quarter: 2022Q1

REPORT INFORMATION
  Report Type: Report from Study
  Country: US (occurrence: US)
  Receive Date: 20220204
  Receipt Date: 20220204
  Transmission Date: 20220423
  Serious: No
  Sender: FDA-Public Use
  Company Number: US-EXELIXIS-CABO-21039596

PATIENT
  Age: 62 Year
  Sex: Male
  Weight: 84.8 kg

DRUGS (2)
  1. CABOMETYX [Suspect]
     Active Substance: CABOZANTINIB S-MALATE
     Indication: Renal cell carcinoma
     Dosage: 40 MG, QD
     Route: 048
  2. OPDIVO [Concomitant]
     Active Substance: NIVOLUMAB
     Dosage: UNK

REACTIONS (5)
  - Skin exfoliation [Unknown]
  - Pruritus [Unknown]
  - Skin ulcer [Unknown]
  - Blood pressure fluctuation [Unknown]
  - Palmar-plantar erythrodysaesthesia syndrome [Unknown]

NARRATIVE: CASE EVENT DATE: 20210401
